FAERS Safety Report 25929773 (Version 1)
Quarter: 2025Q4

REPORT INFORMATION
  Report Type: Spontaneous
  Country: CA (occurrence: CA)
  Receive Date: 20251016
  Receipt Date: 20251016
  Transmission Date: 20260118
  Serious: Yes (Death, Life-Threatening, Hospitalization, Disabling, Other)
  Sender: ACCORD
  Company Number: None

PATIENT
  Age: 43 Year
  Sex: Female

DRUGS (117)
  1. HYDROXYCHLOROQUINE SULFATE [Suspect]
     Active Substance: HYDROXYCHLOROQUINE SULFATE
     Indication: Rheumatoid arthritis
     Dosage: 1 EVERY 1 DAY
     Route: 048
  2. PREDNISONE [Suspect]
     Active Substance: PREDNISONE
     Indication: Rheumatoid arthritis
     Route: 048
  3. PREGABALIN [Suspect]
     Active Substance: PREGABALIN
     Indication: Product used for unknown indication
  4. PREVACID [Suspect]
     Active Substance: LANSOPRAZOLE
     Indication: Product used for unknown indication
  5. PSEUDOEPHEDRINE HYDROCHLORIDE [Suspect]
     Active Substance: PSEUDOEPHEDRINE HYDROCHLORIDE
     Indication: Product used for unknown indication
  6. CETIRIZINE HYDROCHLORIDE\PSEUDOEPHEDRINE HYDROCHLORIDE [Suspect]
     Active Substance: CETIRIZINE HYDROCHLORIDE\PSEUDOEPHEDRINE HYDROCHLORIDE
     Indication: Rheumatoid arthritis
     Route: 048
  7. REMICADE [Suspect]
     Active Substance: INFLIXIMAB
     Indication: Rheumatoid arthritis
     Dosage: POWDER FOR SOLUTION
     Route: 042
  8. DIETARY SUPPLEMENT\HERBALS [Suspect]
     Active Substance: DIETARY SUPPLEMENT\HERBALS
     Indication: Rheumatoid arthritis
  9. ALBUTEROL [Suspect]
     Active Substance: ALBUTEROL
     Indication: Product used for unknown indication
  10. ALENDRONATE SODIUM [Suspect]
     Active Substance: ALENDRONATE SODIUM
     Indication: Rheumatoid arthritis
     Route: 048
  11. DICLOFENAC SODIUM [Suspect]
     Active Substance: DICLOFENAC SODIUM
     Indication: Rheumatoid arthritis
     Route: 048
  12. HYDROCORTISONE [Suspect]
     Active Substance: HYDROCORTISONE
     Indication: Rheumatoid arthritis
     Route: 048
  13. ACETAMINOPHEN\OXYCODONE HYDROCHLORIDE [Suspect]
     Active Substance: ACETAMINOPHEN\OXYCODONE HYDROCHLORIDE
     Indication: Product used for unknown indication
  14. PREGABALIN [Suspect]
     Active Substance: PREGABALIN
     Indication: Product used for unknown indication
  15. QUETIAPINE FUMARATE [Suspect]
     Active Substance: QUETIAPINE FUMARATE
     Indication: Product used for unknown indication
     Dosage: SUBDERMAL
  16. SIMPONI [Suspect]
     Active Substance: GOLIMUMAB
     Indication: Rheumatoid arthritis
     Dosage: SOLUTION
     Route: 058
  17. SULFAMETHOXAZOLE\TRIMETHOPRIM [Suspect]
     Active Substance: SULFAMETHOXAZOLE\TRIMETHOPRIM
     Indication: Rheumatoid arthritis
  18. PREDNISONE [Suspect]
     Active Substance: PREDNISONE
     Indication: Rheumatoid arthritis
     Route: 048
  19. ZESTRIL [Suspect]
     Active Substance: LISINOPRIL
     Indication: Product used for unknown indication
  20. ACETAMINOPHEN [Suspect]
     Active Substance: ACETAMINOPHEN
     Indication: Rheumatoid arthritis
  21. PREDNISONE [Suspect]
     Active Substance: PREDNISONE
     Indication: Product used for unknown indication
  22. ASACOL [Suspect]
     Active Substance: MESALAMINE
     Indication: Product used for unknown indication
     Dosage: ENTERIC COATED
  23. ATIVAN [Suspect]
     Active Substance: LORAZEPAM
     Indication: Product used for unknown indication
  24. CAFFEINE [Suspect]
     Active Substance: CAFFEINE
     Indication: Rheumatoid arthritis
     Route: 058
  25. CALCIUM [Suspect]
     Active Substance: CALCIUM
     Indication: Product used for unknown indication
  26. CALCIUM CARBONATE [Suspect]
     Active Substance: CALCIUM CARBONATE
     Indication: Rheumatoid arthritis
  27. CALCIUM GLUBIONATE [Suspect]
     Active Substance: CALCIUM GLUBIONATE
     Indication: Rheumatoid arthritis
     Route: 048
  28. CALCIUM LACTATE [Suspect]
     Active Substance: CALCIUM LACTATE
     Indication: Rheumatoid arthritis
  29. CELECOXIB [Suspect]
     Active Substance: CELECOXIB
     Indication: Rheumatoid arthritis
  30. CHLORAPREP [Suspect]
     Active Substance: CHLORHEXIDINE GLUCONATE\ISOPROPYL ALCOHOL
     Indication: Product used for unknown indication
     Dosage: SOLUTION
     Route: 048
  31. CHLORHEXIDINE GLUCONATE\ISOPROPYL ALCOHOL [Suspect]
     Active Substance: CHLORHEXIDINE GLUCONATE\ISOPROPYL ALCOHOL
     Indication: Product used for unknown indication
  32. CODEINE [Suspect]
     Active Substance: CODEINE
     Indication: Product used for unknown indication
     Route: 016
  33. CORTISONE [Suspect]
     Active Substance: CORTISONE
     Indication: Product used for unknown indication
  34. DICLOFENAC [Suspect]
     Active Substance: DICLOFENAC
     Indication: Rheumatoid arthritis
  35. DICLOFENAC POTASSIUM [Suspect]
     Active Substance: DICLOFENAC POTASSIUM
     Indication: Rheumatoid arthritis
     Route: 048
  36. DOXYCYCLINE HYCLATE [Suspect]
     Active Substance: DOXYCYCLINE HYCLATE
     Indication: Rheumatoid arthritis
     Route: 048
  37. EMEND [Suspect]
     Active Substance: APREPITANT
     Indication: Rheumatoid arthritis
     Dosage: 1 EVERY 1 DAY
  38. ENBREL [Suspect]
     Active Substance: ETANERCEPT
     Indication: Rheumatoid arthritis
     Dosage: SUBDERMAL
  39. ERELZI [Suspect]
     Active Substance: ETANERCEPT-SZZS
     Indication: Rheumatoid arthritis
     Dosage: SUBDERMAL
  40. ETHINYL ESTRADIOL\NORETHINDRONE [Suspect]
     Active Substance: ETHINYL ESTRADIOL\NORETHINDRONE
     Indication: Product used for unknown indication
  41. GLUCOSAMINE [Suspect]
     Active Substance: GLUCOSAMINE
     Indication: Rheumatoid arthritis
     Route: 048
  42. HUMIRA [Suspect]
     Active Substance: ADALIMUMAB
     Indication: Fibromyalgia
     Dosage: SOLUTION
     Route: 058
  43. HYALURONIDASE [Suspect]
     Active Substance: HYALURONIDASE
     Indication: Rheumatoid arthritis
     Dosage: 1 EVERY 1 DAY
     Route: 048
  44. HYDROCORTISONE BUTYRATE [Suspect]
     Active Substance: HYDROCORTISONE BUTYRATE
     Indication: Rheumatoid arthritis
     Route: 048
  45. HYDROCORTISONE SODIUM SUCCINATE [Suspect]
     Active Substance: HYDROCORTISONE SODIUM SUCCINATE
     Indication: Rheumatoid arthritis
     Dosage: SUBDERMAL
  46. ISOPROPYL ALCOHOL [Suspect]
     Active Substance: ISOPROPYL ALCOHOL
     Indication: Product used for unknown indication
     Dosage: LIQUID
     Route: 061
  47. CLIOQUINOL\FLUMETHASONE [Suspect]
     Active Substance: CLIOQUINOL\FLUMETHASONE
     Indication: Rheumatoid arthritis
     Route: 048
  48. MELOXICAM [Suspect]
     Active Substance: MELOXICAM
     Indication: Product used for unknown indication
  49. MORPHINE [Suspect]
     Active Substance: MORPHINE
     Indication: Rheumatoid arthritis
     Route: 048
  50. NAPROXEN SODIUM [Suspect]
     Active Substance: NAPROXEN SODIUM
     Indication: Product used for unknown indication
  51. PANTOPRAZOLE SODIUM [Suspect]
     Active Substance: PANTOPRAZOLE SODIUM
     Indication: Dyspepsia
     Route: 048
  52. PARA-AMINOSALICYLIC ACID [Suspect]
     Active Substance: AMINOSALICYLIC ACID
     Indication: Rheumatoid arthritis
     Dosage: INTRAVENOUS DRIP
  53. PHTHALYLSULFATHIAZOLE [Suspect]
     Active Substance: PHTHALYLSULFATHIAZOLE
     Indication: Urticaria
     Route: 048
  54. PIROXICAM [Suspect]
     Active Substance: PIROXICAM
     Indication: Product used for unknown indication
  55. PLAQUENIL [Suspect]
     Active Substance: HYDROXYCHLOROQUINE SULFATE
     Indication: Rheumatoid arthritis
     Dosage: 1 EVERY 1 DAY
  56. PREDNISONE [Suspect]
     Active Substance: PREDNISONE
     Indication: Rheumatoid arthritis
     Route: 048
  57. PREDNISONE [Suspect]
     Active Substance: PREDNISONE
     Indication: Rheumatoid arthritis
  58. PREDNISONE [Suspect]
     Active Substance: PREDNISONE
     Indication: Rheumatoid arthritis
     Dosage: 1 EVERY 1 DAY
     Route: 048
  59. PREDNISONE [Suspect]
     Active Substance: PREDNISONE
     Indication: Rheumatoid arthritis
  60. PREDNISONE [Suspect]
     Active Substance: PREDNISONE
     Indication: Rheumatoid arthritis
  61. PREDNISONE [Suspect]
     Active Substance: PREDNISONE
     Indication: Rheumatoid arthritis
  62. QUETIAPINE FUMARATE [Suspect]
     Active Substance: QUETIAPINE FUMARATE
     Indication: Product used for unknown indication
     Dosage: SUBDERMAL
  63. QUETIAPINE FUMARATE [Suspect]
     Active Substance: QUETIAPINE FUMARATE
     Indication: Product used for unknown indication
     Dosage: SUBDERMAL
  64. QUETIAPINE FUMARATE [Suspect]
     Active Substance: QUETIAPINE FUMARATE
     Indication: Product used for unknown indication
  65. HYDROCORTISONE [Suspect]
     Active Substance: HYDROCORTISONE
     Indication: Rheumatoid arthritis
  66. HYDROCORTISONE [Suspect]
     Active Substance: HYDROCORTISONE
     Indication: Rheumatoid arthritis
     Dosage: SUBDERMAL
  67. DICLOFENAC SODIUM [Suspect]
     Active Substance: DICLOFENAC SODIUM
     Indication: Rheumatoid arthritis
  68. DICLOFENAC SODIUM [Suspect]
     Active Substance: DICLOFENAC SODIUM
     Indication: Rheumatoid arthritis
     Dosage: 1 EVERY 1 DAY
  69. DICLOFENAC SODIUM [Suspect]
     Active Substance: DICLOFENAC SODIUM
     Indication: Rheumatoid arthritis
     Dosage: SUBDERMAL
  70. DICLOFENAC SODIUM [Suspect]
     Active Substance: DICLOFENAC SODIUM
     Indication: Rheumatoid arthritis
  71. ALENDRONATE SODIUM [Suspect]
     Active Substance: ALENDRONATE SODIUM
     Indication: Rheumatoid arthritis
     Route: 048
  72. ALENDRONATE SODIUM [Suspect]
     Active Substance: ALENDRONATE SODIUM
     Indication: Rheumatoid arthritis
     Dosage: SUBDERMAL
  73. ALENDRONATE SODIUM [Suspect]
     Active Substance: ALENDRONATE SODIUM
     Indication: Rheumatoid arthritis
     Route: 016
  74. ALENDRONATE SODIUM [Suspect]
     Active Substance: ALENDRONATE SODIUM
     Indication: Rheumatoid arthritis
     Route: 048
  75. CETIRIZINE HYDROCHLORIDE\PSEUDOEPHEDRINE HYDROCHLORIDE [Suspect]
     Active Substance: CETIRIZINE HYDROCHLORIDE\PSEUDOEPHEDRINE HYDROCHLORIDE
     Indication: Rheumatoid arthritis
     Dosage: SUBDERMAL
  76. PREDNISONE [Suspect]
     Active Substance: PREDNISONE
     Indication: Rheumatoid arthritis
     Route: 048
  77. PREDNISONE [Suspect]
     Active Substance: PREDNISONE
     Indication: Rheumatoid arthritis
     Route: 048
  78. PREDNISONE [Suspect]
     Active Substance: PREDNISONE
     Indication: Rheumatoid arthritis
     Route: 048
  79. PREDNISONE [Suspect]
     Active Substance: PREDNISONE
     Indication: Rheumatoid arthritis
     Dosage: INTRAVENOUS DRIP
  80. PREDNISONE [Suspect]
     Active Substance: PREDNISONE
     Indication: Rheumatoid arthritis
     Dosage: INTRAVENOUS DRIP
  81. PLAQUENIL [Suspect]
     Active Substance: HYDROXYCHLOROQUINE SULFATE
     Indication: Rheumatoid arthritis
     Dosage: 1 EVERY 1 DAY
     Route: 048
  82. PLAQUENIL [Suspect]
     Active Substance: HYDROXYCHLOROQUINE SULFATE
     Indication: Rheumatoid arthritis
  83. PLAQUENIL [Suspect]
     Active Substance: HYDROXYCHLOROQUINE SULFATE
     Indication: Rheumatoid arthritis
     Dosage: 1 EVERY 1 DAY
     Route: 048
  84. PHTHALYLSULFATHIAZOLE [Suspect]
     Active Substance: PHTHALYLSULFATHIAZOLE
     Indication: Urticaria
     Dosage: 1 EVERY 1 DAY
     Route: 048
  85. PHTHALYLSULFATHIAZOLE [Suspect]
     Active Substance: PHTHALYLSULFATHIAZOLE
     Indication: Urticaria
     Dosage: INTRAVENOUS DRIP
  86. PHTHALYLSULFATHIAZOLE [Suspect]
     Active Substance: PHTHALYLSULFATHIAZOLE
     Indication: Urticaria
     Route: 016
  87. PARA-AMINOSALICYLIC ACID [Suspect]
     Active Substance: AMINOSALICYLIC ACID
     Indication: Rheumatoid arthritis
     Dosage: INTRAVENOUS DRIP
  88. PARA-AMINOSALICYLIC ACID [Suspect]
     Active Substance: AMINOSALICYLIC ACID
     Indication: Rheumatoid arthritis
     Dosage: INTRAVENOUS DRIP
  89. PARA-AMINOSALICYLIC ACID [Suspect]
     Active Substance: AMINOSALICYLIC ACID
     Indication: Rheumatoid arthritis
  90. PANTOPRAZOLE SODIUM [Suspect]
     Active Substance: PANTOPRAZOLE SODIUM
     Indication: Dyspepsia
     Dosage: SUBDERMAL
  91. PANTOPRAZOLE SODIUM [Suspect]
     Active Substance: PANTOPRAZOLE SODIUM
     Indication: Dyspepsia
     Route: 016
  92. CLIOQUINOL\FLUMETHASONE [Suspect]
     Active Substance: CLIOQUINOL\FLUMETHASONE
     Indication: Rheumatoid arthritis
     Route: 048
  93. CLIOQUINOL\FLUMETHASONE [Suspect]
     Active Substance: CLIOQUINOL\FLUMETHASONE
     Indication: Rheumatoid arthritis
     Route: 048
  94. CLIOQUINOL\FLUMETHASONE [Suspect]
     Active Substance: CLIOQUINOL\FLUMETHASONE
     Indication: Rheumatoid arthritis
     Dosage: 1 EVERY 1 DAY
     Route: 048
  95. CLIOQUINOL\FLUMETHASONE [Suspect]
     Active Substance: CLIOQUINOL\FLUMETHASONE
     Indication: Rheumatoid arthritis
     Dosage: INTRAVENOUS DRIP
  96. ISOPROPYL ALCOHOL [Suspect]
     Active Substance: ISOPROPYL ALCOHOL
     Indication: Product used for unknown indication
     Route: 048
  97. ENBREL [Suspect]
     Active Substance: ETANERCEPT
     Indication: Rheumatoid arthritis
     Dosage: SUBDERMAL
  98. ENBREL [Suspect]
     Active Substance: ETANERCEPT
     Indication: Rheumatoid arthritis
     Dosage: SUBDERMAL
  99. ENBREL [Suspect]
     Active Substance: ETANERCEPT
     Indication: Rheumatoid arthritis
     Dosage: SUBDERMAL
  100. ENBREL [Suspect]
     Active Substance: ETANERCEPT
     Indication: Rheumatoid arthritis
     Dosage: SUBDERMAL, 1 EVERY 1 DAY
  101. ENBREL [Suspect]
     Active Substance: ETANERCEPT
     Indication: Rheumatoid arthritis
     Route: 048
  102. EMEND [Suspect]
     Active Substance: APREPITANT
     Indication: Rheumatoid arthritis
     Dosage: 1 EVERY 1 DAY
  103. EMEND [Suspect]
     Active Substance: APREPITANT
     Indication: Rheumatoid arthritis
  104. DOXYCYCLINE HYCLATE [Suspect]
     Active Substance: DOXYCYCLINE HYCLATE
     Indication: Rheumatoid arthritis
     Route: 048
  105. CODEINE [Suspect]
     Active Substance: CODEINE
     Indication: Product used for unknown indication
     Route: 052
  106. CODEINE [Suspect]
     Active Substance: CODEINE
     Indication: Product used for unknown indication
     Dosage: INTRAVENOUS DRIP
     Route: 016
  107. CODEINE [Suspect]
     Active Substance: CODEINE
     Indication: Product used for unknown indication
     Dosage: SUBDERMAL
  108. CALCIUM GLUBIONATE [Suspect]
     Active Substance: CALCIUM GLUBIONATE
     Indication: Rheumatoid arthritis
     Route: 048
  109. CALCIUM GLUBIONATE [Suspect]
     Active Substance: CALCIUM GLUBIONATE
     Indication: Rheumatoid arthritis
     Route: 048
  110. CALCIUM GLUBIONATE [Suspect]
     Active Substance: CALCIUM GLUBIONATE
     Indication: Rheumatoid arthritis
     Dosage: INTRAVENOUS DRIP
  111. CALCIUM [Suspect]
     Active Substance: CALCIUM
     Indication: Product used for unknown indication
  112. HYDROXYCHLOROQUINE SULFATE [Suspect]
     Active Substance: HYDROXYCHLOROQUINE SULFATE
     Indication: Rheumatoid arthritis
     Dosage: 1 EVERY 1 DAY
     Route: 048
  113. HYDROXYCHLOROQUINE SULFATE [Suspect]
     Active Substance: HYDROXYCHLOROQUINE SULFATE
     Indication: Rheumatoid arthritis
     Dosage: 1 EVERY 1 DAY
     Route: 048
  114. HYDROXYCHLOROQUINE SULFATE [Suspect]
     Active Substance: HYDROXYCHLOROQUINE SULFATE
     Indication: Rheumatoid arthritis
     Route: 048
  115. HYDROXYCHLOROQUINE SULFATE [Suspect]
     Active Substance: HYDROXYCHLOROQUINE SULFATE
     Indication: Rheumatoid arthritis
     Dosage: 1 EVERY 1 DAY
     Route: 066
  116. HYDROXYCHLOROQUINE SULFATE [Suspect]
     Active Substance: HYDROXYCHLOROQUINE SULFATE
     Indication: Rheumatoid arthritis
     Dosage: 1 EVERY 1 DAY
     Route: 066
  117. HYDROXYCHLOROQUINE SULFATE [Suspect]
     Active Substance: HYDROXYCHLOROQUINE SULFATE
     Indication: Rheumatoid arthritis
     Route: 016

REACTIONS (10)
  - Pruritus [Fatal]
  - Migraine [Fatal]
  - Oedema peripheral [Fatal]
  - Mobility decreased [Fatal]
  - Pain in extremity [Fatal]
  - Pancreatitis [Fatal]
  - Pain [Fatal]
  - Musculoskeletal stiffness [Fatal]
  - Nausea [Fatal]
  - Porphyria acute [Fatal]
